FAERS Safety Report 15838294 (Version 1)
Quarter: 2019Q1

REPORT INFORMATION
  Report Type: Report from Study
  Country: DE (occurrence: DE)
  Receive Date: 20190117
  Receipt Date: 20190117
  Transmission Date: 20190417
  Serious: Yes (Hospitalization)
  Sender: FDA-Public Use
  Company Number: DE-PFIZER INC-2019020785

PATIENT
  Sex: Female

DRUGS (14)
  1. NO SUBJECT DRUG [Suspect]
     Active Substance: UNSPECIFIED INGREDIENT
     Dosage: NO DOSE GIVEN
  2. METHOTREXATE SODIUM. [Suspect]
     Active Substance: METHOTREXATE SODIUM
     Dosage: 12.5 MG, UNK
     Dates: start: 20140728
  3. METHOTREXATE SODIUM. [Suspect]
     Active Substance: METHOTREXATE SODIUM
     Dosage: 12.5 MG, UNK
     Dates: start: 20150716
  4. METHOTREXATE SODIUM. [Suspect]
     Active Substance: METHOTREXATE SODIUM
     Dosage: 15 MG, UNK
     Dates: start: 20130703
  5. METHOTREXATE SODIUM. [Suspect]
     Active Substance: METHOTREXATE SODIUM
     Dosage: 12.5 MG, UNK
     Dates: start: 20160331
  6. REMICADE [Suspect]
     Active Substance: INFLIXIMAB
     Dosage: 200 MG, UNK
     Dates: start: 201312
  7. METHOTREXATE SODIUM. [Suspect]
     Active Substance: METHOTREXATE SODIUM
     Dosage: 12.5 MG, UNK
     Dates: start: 20160725
  8. ROACTEMRA [Suspect]
     Active Substance: TOCILIZUMAB
     Dosage: 162 MG, UNK
     Dates: start: 201701, end: 201703
  9. METHOTREXATE SODIUM. [Suspect]
     Active Substance: METHOTREXATE SODIUM
     Dosage: 12.5 MG, UNK
     Dates: start: 20150105
  10. METHOTREXATE SODIUM. [Suspect]
     Active Substance: METHOTREXATE SODIUM
     Dosage: 12.5 MG, UNK
     Dates: start: 20161218
  11. REMICADE [Suspect]
     Active Substance: INFLIXIMAB
     Dosage: 300 MG, UNK
     Dates: start: 201307
  12. METHOTREXATE SODIUM. [Suspect]
     Active Substance: METHOTREXATE SODIUM
     Dosage: 7.5 MG, UNK
     Dates: start: 20131024
  13. METHOTREXATE SODIUM. [Suspect]
     Active Substance: METHOTREXATE SODIUM
     Dosage: 12.5 MG, UNK
     Dates: start: 20140212
  14. METHOTREXATE SODIUM. [Suspect]
     Active Substance: METHOTREXATE SODIUM
     Dosage: 12.5 MG, UNK
     Dates: start: 20170612

REACTIONS (2)
  - Rheumatoid arthritis [Recovered/Resolved]
  - Phlebitis [Unknown]

NARRATIVE: CASE EVENT DATE: 20161228
